FAERS Safety Report 8620910-9 (Version None)
Quarter: 2012Q3

REPORT INFORMATION
  Report Type: 
  Country: None (occurrence: None)
  Receive Date: 20120824
  Receipt Date: 20120821
  Transmission Date: 20120928
  Serious: Yes (Hospitalization)
  Sender: FDA-Public Use
  Company Number: PR-AMGEN-PRISP2012050036

PATIENT
  Age: 30 Year
  Sex: Female
  Weight: 46.712 kg

DRUGS (3)
  1. PROLIA [Suspect]
     Indication: OSTEOPOROSIS POSTMENOPAUSAL
     Dosage: 60 MG, Q6MO
     Route: 058
     Dates: start: 20110906
  2. PROVERA [Concomitant]
  3. PREMARIN [Concomitant]

REACTIONS (5)
  - DIZZINESS [None]
  - EAR INFECTION [None]
  - CYSTITIS [None]
  - INFLUENZA [None]
  - VERTIGO [None]
